FAERS Safety Report 5350555-8 (Version None)
Quarter: 2007Q2

REPORT INFORMATION
  Report Type: 
  Country: None (occurrence: None)
  Receive Date: 20070606
  Receipt Date: 20070521
  Transmission Date: 20071010
  Serious: Yes (Death, Hospitalization)
  Sender: FDA-Public Use
  Company Number: 37609

PATIENT
  Age: 66 Year
  Sex: Male

DRUGS (1)
  1. COLCHICUM JTL LIQ [Suspect]
     Indication: GOUT
     Dosage: 0.6 MG TWICE DAILY

REACTIONS (5)
  - MYOPATHY [None]
  - OPHTHALMOPLEGIA [None]
  - PARALYSIS FLACCID [None]
  - QUADRIPLEGIA [None]
  - SEPSIS [None]
